FAERS Safety Report 8858336 (Version 1)
Quarter: 2012Q4

REPORT INFORMATION
  Report Type: 
  Country: US (occurrence: US)
  Receive Date: 20121024
  Receipt Date: 20121024
  Transmission Date: 20130627
  Serious: No
  Sender: FDA-Public Use
  Company Number: US-AMGEN-USASP2011062700

PATIENT
  Age: 50 Year
  Sex: Female
  Weight: 81.63 kg

DRUGS (10)
  1. ENBREL [Suspect]
     Indication: PRODUCT USED FOR UNKNOWN INDICATION
     Dosage: 50 mg, qwk
     Route: 058
  2. AMBIEN [Concomitant]
     Dosage: 5 mg, UNK
  3. METHOTREXATE [Concomitant]
     Dosage: 2.5 mg, UNK
  4. LISINOPRIL [Concomitant]
     Dosage: 5 mg, UNK
  5. SIMVASTATIN [Concomitant]
     Dosage: 5 mg, UNK
  6. FOLIC ACID [Concomitant]
     Dosage: 1 mg, UNK
  7. WELLBUTRIN [Concomitant]
     Dosage: 75 mg, UNK
  8. PRILOSEC                           /00661201/ [Concomitant]
     Dosage: 10 mg, UNK
  9. ASPIRIN [Concomitant]
     Dosage: 81 mg, UNK
  10. CYCLOBENZAPRIN HCL [Concomitant]
     Dosage: 5 mg, UNK

REACTIONS (1)
  - Epistaxis [Unknown]
